FAERS Safety Report 13294311 (Version 2)
Quarter: 2017Q1

REPORT INFORMATION
  Report Type: Spontaneous
  Country: FI (occurrence: FI)
  Receive Date: 20170303
  Receipt Date: 20170316
  Transmission Date: 20170428
  Serious: Yes (Other)
  Sender: FDA-Public Use
  Company Number: FI-SAOL THERAPEUTICS-2017SAO00401

PATIENT
  Age: 42 Year
  Sex: Male

DRUGS (1)
  1. LIORESAL [Suspect]
     Active Substance: BACLOFEN
     Dosage: 1300 ?G, \DAY
     Route: 037

REACTIONS (3)
  - Therapy non-responder [Recovered/Resolved]
  - Multiple sclerosis relapse [Recovered/Resolved]
  - Device failure [Recovered/Resolved]

NARRATIVE: CASE EVENT DATE: 2016
